FAERS Safety Report 16233645 (Version 1)
Quarter: 2019Q2

REPORT INFORMATION
  Report Type: Spontaneous
  Country: US (occurrence: US)
  Receive Date: 20190423
  Receipt Date: 20190423
  Transmission Date: 20190711
  Serious: No
  Sender: FDA-Public Use
  Company Number: None

PATIENT
  Age: 62 Year
  Sex: Female
  Weight: 58.5 kg

DRUGS (9)
  1. GLUTAMINE [Concomitant]
     Active Substance: GLUTAMINE
  2. CALCIUM [Concomitant]
     Active Substance: CALCIUM
  3. HELP SEED [Concomitant]
  4. BCAA [Concomitant]
  5. CHIA SEED [Concomitant]
  6. COLLAGEN [Concomitant]
     Active Substance: COLLAGEN
  7. LORATADINE. [Concomitant]
     Active Substance: LORATADINE
  8. D [Concomitant]
  9. ROSUVASTATIN. [Suspect]
     Active Substance: ROSUVASTATIN
     Indication: BLOOD CHOLESTEROL
     Dosage: ?          QUANTITY:1 TABLET(S);?
     Route: 048

REACTIONS (3)
  - Arthralgia [None]
  - Myalgia [None]
  - Quality of life decreased [None]

NARRATIVE: CASE EVENT DATE: 20190417
